FAERS Safety Report 7629447-7 (Version None)
Quarter: 2011Q3

REPORT INFORMATION
  Report Type: 
  Country: None (occurrence: None)
  Receive Date: 20110722
  Receipt Date: 20110711
  Transmission Date: 20111222
  Serious: Yes (Other)
  Sender: FDA-Public Use
  Company Number: US-JNJFOC-20110705037

PATIENT
  Age: 52 Year
  Sex: Female
  Weight: 97.07 kg

DRUGS (4)
  1. ALPRAZOLAM [Concomitant]
     Indication: ANXIETY
  2. EXTRA STRENGTH TYLENOL PM [Suspect]
     Indication: INSOMNIA
     Dosage: 2 GELTABS AND 2 GELTABS MORE AFTER 6 HOURS
     Route: 048
     Dates: start: 20110709
  3. TRILEPTAL [Concomitant]
  4. TOPAMAX [Concomitant]
     Indication: CONVULSION

REACTIONS (2)
  - CONVULSION [None]
  - PRODUCT QUALITY ISSUE [None]
